FAERS Safety Report 6932481-3 (Version None)
Quarter: 2010Q3

REPORT INFORMATION
  Report Type: 
  Country: None (occurrence: None)
  Receive Date: 20100819
  Receipt Date: 20100813
  Transmission Date: 20110219
  Serious: Yes (Death)
  Sender: FDA-Public Use
  Company Number: CH-MERCK-1008USA01575

PATIENT
  Age: 72 Year
  Sex: Male
  Weight: 57 kg

DRUGS (13)
  1. PRIMAXIN [Suspect]
     Indication: URINARY TRACT INFECTION
     Route: 042
     Dates: start: 20081218
  2. CIPROFLOXACIN [Suspect]
     Indication: URINARY TRACT INFECTION
     Route: 048
     Dates: start: 20081215, end: 20081217
  3. SINTROM [Suspect]
     Indication: ATRIAL FIBRILLATION
     Route: 048
     Dates: start: 20081205, end: 20090107
  4. DEPAKENE [Suspect]
     Route: 048
  5. PLAVIX [Suspect]
     Indication: ACUTE MYOCARDIAL INFARCTION
     Route: 048
     Dates: start: 20081101
  6. NEXIUM [Suspect]
     Route: 048
  7. ARICEPT [Concomitant]
     Route: 065
  8. LIPITOR [Concomitant]
     Route: 065
  9. FLUANXOL [Concomitant]
     Route: 065
  10. GLUCOPHAGE [Concomitant]
     Route: 065
  11. ATACAND [Concomitant]
     Route: 065
  12. CREON [Concomitant]
     Route: 065
  13. DIGOXIN [Concomitant]
     Route: 065

REACTIONS (3)
  - ENTEROCOLITIS HAEMORRHAGIC [None]
  - INTERNATIONAL NORMALISED RATIO INCREASED [None]
  - PETECHIAE [None]
